FAERS Safety Report 7419103-2 (Version None)
Quarter: 2011Q2

REPORT INFORMATION
  Report Type: 
  Country: None (occurrence: None)
  Receive Date: 20110415
  Receipt Date: 20110404
  Transmission Date: 20111010
  Serious: Yes (Hospitalization)
  Sender: FDA-Public Use
  Company Number: US-BAYER-2011-030565

PATIENT
  Age: 19 Year
  Sex: Female
  Weight: 76 kg

DRUGS (2)
  1. NYQUIL [Interacting]
     Dosage: UNK UNK, ONCE
     Dates: start: 20110404
  2. ASPIRIN [Suspect]
     Dosage: 25 DF, ONCE
     Route: 048
     Dates: start: 20110404, end: 20110404

REACTIONS (1)
  - NO ADVERSE EVENT [None]
